FAERS Safety Report 5145188-2 (Version None)
Quarter: 2006Q4

REPORT INFORMATION
  Report Type: 
  Country: None (occurrence: None)
  Receive Date: 20061107
  Receipt Date: 20061027
  Transmission Date: 20070319
  Serious: Yes (Other)
  Sender: FDA-Public Use
  Company Number: 2006AC01995

PATIENT
  Age: 55 Year
  Sex: Male

DRUGS (4)
  1. OMEPRAZOLE [Suspect]
     Route: 048
  2. FELODIPINE [Concomitant]
  3. INDAPAMIDE [Concomitant]
  4. DEER VELVET [Concomitant]
     Indication: ILL-DEFINED DISORDER

REACTIONS (3)
  - NEPHRITIS INTERSTITIAL [None]
  - RENAL FAILURE ACUTE [None]
  - TYPE IV HYPERSENSITIVITY REACTION [None]
